FAERS Safety Report 23835987 (Version 1)
Quarter: 2024Q2

REPORT INFORMATION
  Report Type: Spontaneous
  Country: DE (occurrence: DE)
  Receive Date: 20240509
  Receipt Date: 20240509
  Transmission Date: 20240716
  Serious: Yes (Other)
  Sender: FDA-Public Use
  Company Number: None

PATIENT
  Age: 23 Year
  Sex: Male
  Weight: 68 kg

DRUGS (2)
  1. ESCITALOPRAM [Suspect]
     Active Substance: ESCITALOPRAM OXALATE
     Indication: Irritable bowel syndrome
     Dosage: UNIT DOSE-10 MILLIGRAM, FORM-UNKNOWN
     Route: 048
     Dates: start: 202404, end: 202404
  2. ESCITALOPRAM [Suspect]
     Active Substance: ESCITALOPRAM OXALATE
     Indication: Irritable bowel syndrome
     Dosage: 5MG - 6 DAYS 5MG AND THE LAST (7 DAY) 10MG. IN TOTAL, IT WAS TAKEN FOR A WEEK.?FORM-UNKNOWN
     Route: 048
     Dates: start: 202403, end: 202404

REACTIONS (9)
  - Erectile dysfunction [Not Recovered/Not Resolved]
  - Insomnia [Not Recovered/Not Resolved]
  - Product use in unapproved indication [Unknown]
  - Headache [Not Recovered/Not Resolved]
  - Sexual dysfunction [Not Recovered/Not Resolved]
  - Emotional disorder [Not Recovered/Not Resolved]
  - Restlessness [Not Recovered/Not Resolved]
  - Ejaculation disorder [Not Recovered/Not Resolved]
  - Cognitive disorder [Not Recovered/Not Resolved]

NARRATIVE: CASE EVENT DATE: 20240403
